FAERS Safety Report 10301451 (Version 1)
Quarter: 2014Q3

REPORT INFORMATION
  Report Type: Spontaneous
  Country: SI (occurrence: SI)
  Receive Date: 20140714
  Receipt Date: 20140714
  Transmission Date: 20150326
  Serious: Yes (Death)
  Sender: FDA-Public Use
  Company Number: SI-PFIZER INC-2014195436

PATIENT
  Age: 37 Year
  Sex: Female

DRUGS (4)
  1. BROMERGON [Concomitant]
     Active Substance: BROMOCRIPTINE MESYLATE
     Dosage: 5 MG, 2X/DAY, 1X IN THE MORNING AND 1X IN THE EVENING
  2. CYTOTEC [Suspect]
     Active Substance: MISOPROSTOL
     Indication: ABORTION INDUCED
     Dosage: 200 UG, 4X/DAY
     Route: 067
     Dates: start: 20140620, end: 20140620
  3. MIFEGYNE [Concomitant]
     Active Substance: MIFEPRISTONE
     Dosage: UNK
     Route: 048
     Dates: start: 20140618, end: 20140618
  4. RHOPHYLAC [Concomitant]
     Active Substance: HUMAN RHO(D) IMMUNE GLOBULIN
     Dosage: 300 IU, UNK
     Route: 030
     Dates: start: 20140620, end: 20140620

REACTIONS (1)
  - Pulmonary embolism [Fatal]

NARRATIVE: CASE EVENT DATE: 20140620
